FAERS Safety Report 7455862 (Version 8)
Quarter: 2021Q2

REPORT INFORMATION
  Report Type: Report from Study
  Country: US (occurrence: US)
  Receive Date: 20100707
  Receipt Date: 20210625
  Transmission Date: 20210717
  Serious: Yes (Hospitalization, Other)
  Sender: FDA-Public Use
  Company Number: US-CELGENEUS-163-21880-10062908

PATIENT
  Age: 60 Year
  Sex: Male
  Weight: 81.72 kg

DRUGS (3)
  1. REVLIMID [Suspect]
     Active Substance: LENALIDOMIDE
     Indication: PLASMA CELL MYELOMA
     Dosage: 10 MILLIGRAM
     Route: 048
     Dates: start: 20100322, end: 20100402
  2. REVLIMID [Suspect]
     Active Substance: LENALIDOMIDE
     Dosage: 10 MILLIGRAM
     Route: 048
     Dates: start: 20100405, end: 20100706
  3. VELCADE [Suspect]
     Active Substance: BORTEZOMIB
     Indication: PLASMA CELL MYELOMA
     Dosage: 1.3 MILLIGRAM/SQ. METER
     Route: 041
     Dates: start: 20100405, end: 20100719

REACTIONS (10)
  - Intracardiac thrombus [Recovered/Resolved]
  - Deep vein thrombosis [Recovered/Resolved]
  - Pyrexia [Unknown]
  - Device related infection [Recovered/Resolved]
  - Deep vein thrombosis [Recovered/Resolved]
  - Dysphagia [Recovered/Resolved]
  - Cardiac failure congestive [Recovered/Resolved]
  - Candida sepsis [Recovered/Resolved]
  - Hypercalcaemia [Unknown]
  - Skin ulcer [Recovered/Resolved]

NARRATIVE: CASE EVENT DATE: 20100408
